FAERS Safety Report 9710771 (Version 1)
Quarter: 2013Q4

REPORT INFORMATION
  Report Type: Spontaneous
  Country: US (occurrence: US)
  Receive Date: 20131126
  Receipt Date: 20131126
  Transmission Date: 20140711
  Serious: No
  Sender: FDA-Public Use
  Company Number: US-BRISTOL-MYERS SQUIBB COMPANY-18988022

PATIENT
  Age: 61 Year
  Sex: Female
  Weight: 115.19 kg

DRUGS (7)
  1. BYETTA [Suspect]
     Indication: TYPE 2 DIABETES MELLITUS
     Dosage: DOSE INCREASED TO 10MCG
     Route: 058
     Dates: start: 201302
  2. DICLOFENAC [Concomitant]
     Route: 048
  3. MULTIVITAMIN [Concomitant]
  4. VITAMIN D [Concomitant]
  5. CHONDROITIN SULFATE + GLUCOSAMINE [Concomitant]
  6. LISINOPRIL [Concomitant]
     Route: 048
  7. HCTZ [Concomitant]
     Route: 048

REACTIONS (2)
  - Groin pain [Unknown]
  - Weight decreased [Unknown]
